FAERS Safety Report 20912146 (Version 1)
Quarter: 2022Q2

REPORT INFORMATION
  Report Type: Spontaneous
  Country: US (occurrence: US)
  Receive Date: 20220603
  Receipt Date: 20220603
  Transmission Date: 20220721
  Serious: Yes (Hospitalization, Other)
  Sender: FDA-Public Use
  Company Number: US-AMGEN-USASP2022092726

PATIENT
  Age: 7 Year
  Sex: Female

DRUGS (2)
  1. FILGRASTIM [Suspect]
     Active Substance: FILGRASTIM
     Indication: Infantile genetic agranulocytosis
     Dosage: 5 MICROGRAM/KILOGRAM, QD, 2 DOSES
     Route: 065
  2. FILGRASTIM [Suspect]
     Active Substance: FILGRASTIM
     Dosage: 6 DAY COURSE
     Route: 065

REACTIONS (5)
  - Normocytic anaemia [Unknown]
  - Pyrexia [Unknown]
  - Neutropenia [Unknown]
  - Pneumonia [Unknown]
  - Therapy non-responder [Unknown]
